FAERS Safety Report 9548460 (Version 2)
Quarter: 2013Q4

REPORT INFORMATION
  Report Type: Spontaneous
  Country: US (occurrence: US)
  Receive Date: 20130924
  Receipt Date: 20131108
  Transmission Date: 20140711
  Serious: No
  Sender: FDA-Public Use
  Company Number: US-PFIZER INC-2013272736

PATIENT
  Age: 53 Year
  Sex: Male
  Weight: 83.9 kg

DRUGS (2)
  1. VIAGRA [Suspect]
     Indication: ERECTILE DYSFUNCTION
     Dosage: 25 MG, DAILY
     Dates: start: 2010
  2. LEXAPRO [Concomitant]
     Indication: ANXIETY
     Dosage: 5 MG, DAILY

REACTIONS (1)
  - Drug ineffective [Unknown]
